FAERS Safety Report 8205842-2 (Version None)
Quarter: 2012Q1

REPORT INFORMATION
  Report Type: 
  Country: None (occurrence: None)
  Receive Date: 20120309
  Receipt Date: 20120301
  Transmission Date: 20120608
  Serious: Yes (Other)
  Sender: FDA-Public Use
  Company Number: 2012SP011690

PATIENT
  Sex: Female

DRUGS (3)
  1. PEG-INTRON [Suspect]
     Indication: HEPATITIS C
     Dates: start: 20111229, end: 20120222
  2. RIBAVIRIN [Suspect]
     Indication: HEPATITIS C
     Dates: start: 20111229, end: 20120222
  3. TELAPREVIR [Suspect]
     Indication: HEPATITIS C
     Dates: start: 20111229, end: 20120222

REACTIONS (6)
  - TOOTH LOSS [None]
  - DEHYDRATION [None]
  - INSOMNIA [None]
  - DISEASE RECURRENCE [None]
  - DRY MOUTH [None]
  - HEPATITIS [None]
